FAERS Safety Report 10426517 (Version 1)
Quarter: 2014Q3

REPORT INFORMATION
  Report Type: Spontaneous
  Country: US (occurrence: None)
  Receive Date: 20140902
  Receipt Date: 20140902
  Transmission Date: 20150326
  Serious: No
  Sender: FDA-Public Use
  Company Number: None

PATIENT
  Age: 36 Year
  Sex: Female
  Weight: 49.9 kg

DRUGS (2)
  1. SCOPOLAMINE PATCH [Suspect]
     Active Substance: SCOPOLAMINE
     Indication: MOTION SICKNESS
     Route: 058
     Dates: start: 20140725, end: 20140808
  2. SCOPOLAMINE PATCH [Suspect]
     Active Substance: SCOPOLAMINE
     Indication: PROPHYLAXIS OF NAUSEA AND VOMITING
     Route: 058
     Dates: start: 20140725, end: 20140808

REACTIONS (9)
  - Feeling abnormal [None]
  - Dizziness [None]
  - Nausea [None]
  - Drug withdrawal syndrome [None]
  - Vomiting [None]
  - Cold sweat [None]
  - Panic reaction [None]
  - Drug dependence [None]
  - Headache [None]

NARRATIVE: CASE EVENT DATE: 20140821
